FAERS Safety Report 11546015 (Version 1)
Quarter: 2015Q3

REPORT INFORMATION
  Report Type: Spontaneous
  Country: US (occurrence: US)
  Receive Date: 20150903
  Receipt Date: 20150903
  Transmission Date: 20151125
  Serious: No
  Sender: FDA-Public Use
  Company Number: US-ELI_LILLY_AND_COMPANY-US201202007574

PATIENT
  Age: 34 Year
  Sex: Female
  Weight: 65.76 kg

DRUGS (2)
  1. HUMALOG [Suspect]
     Active Substance: INSULIN LISPRO
     Indication: GESTATIONAL DIABETES
     Dosage: 34 U, TID
     Dates: start: 201110
  2. HUMALOG [Suspect]
     Active Substance: INSULIN LISPRO
     Dosage: 34 U, TID
     Dates: start: 201110

REACTIONS (2)
  - Exposure during pregnancy [Recovered/Resolved]
  - Exposure during breast feeding [Unknown]

NARRATIVE: CASE EVENT DATE: 201110
